FAERS Safety Report 5478511-X (Version None)
Quarter: 2007Q4

REPORT INFORMATION
  Report Type: 
  Country: None (occurrence: None)
  Receive Date: 20071005
  Receipt Date: 20070926
  Transmission Date: 20080405
  Serious: Yes (Hospitalization, Disabling, Other)
  Sender: FDA-Public Use
  Company Number: US-ROCHE-493698

PATIENT
  Age: 38 Year
  Sex: Female
  Weight: 65.8 kg

DRUGS (9)
  1. ACCUTANE [Suspect]
     Indication: ACNE
     Route: 065
     Dates: start: 19950601, end: 19950901
  2. ACCUTANE [Suspect]
     Route: 065
     Dates: start: 19930101, end: 19930101
  3. LO/OVRAL [Concomitant]
  4. EFFEXOR [Concomitant]
  5. PROZAC [Concomitant]
  6. DEPO-PROVERA [Concomitant]
  7. AMOXICILLIN [Concomitant]
  8. CEFTIN [Concomitant]
  9. SUDAFED 12 HOUR [Concomitant]

REACTIONS (27)
  - ABDOMINAL ABSCESS [None]
  - ABDOMINAL ADHESIONS [None]
  - ABDOMINAL HERNIA [None]
  - ALCOHOLISM [None]
  - ANAEMIA [None]
  - ANASTOMOTIC COMPLICATION [None]
  - CARDIAC FAILURE CONGESTIVE [None]
  - COLITIS [None]
  - CONDITION AGGRAVATED [None]
  - CROHN'S DISEASE [None]
  - DEPRESSION [None]
  - EMOTIONAL DISTRESS [None]
  - HEPATITIS [None]
  - INFLAMMATORY BOWEL DISEASE [None]
  - INTESTINAL HAEMORRHAGE [None]
  - INTESTINAL OBSTRUCTION [None]
  - IRRITABLE BOWEL SYNDROME [None]
  - LIP DRY [None]
  - NASAL DRYNESS [None]
  - PANIC ATTACK [None]
  - PERITONEAL INFECTION [None]
  - PERITONITIS [None]
  - PNEUMOPERITONEUM [None]
  - PSEUDOPOLYP [None]
  - SEPSIS [None]
  - SUICIDAL IDEATION [None]
  - SUICIDE ATTEMPT [None]
